FAERS Safety Report 9896862 (Version 2)
Quarter: 2015Q4

REPORT INFORMATION
  Report Type: Spontaneous
  Country: US (occurrence: US)
  Receive Date: 20140214
  Receipt Date: 20151001
  Transmission Date: 20160305
  Serious: Yes (Hospitalization, Other)
  Sender: FDA-Public Use
  Company Number: US-AMGEN-USASP2014010309

PATIENT
  Age: 40 Year
  Sex: Female

DRUGS (1)
  1. ENBREL [Suspect]
     Active Substance: ETANERCEPT
     Indication: RHEUMATOID ARTHRITIS
     Dosage: UNK MG, UNK
     Route: 065
     Dates: start: 20011101

REACTIONS (4)
  - Condition aggravated [Unknown]
  - Inflammation [Unknown]
  - Pneumonia [Not Recovered/Not Resolved]
  - Rheumatoid lung [Recovered/Resolved]

NARRATIVE: CASE EVENT DATE: 2004
